FAERS Safety Report 4485055-0 (Version None)
Quarter: 2004Q4

REPORT INFORMATION
  Report Type: 
  Country: None (occurrence: None)
  Receive Date: 20041022
  Receipt Date: 20041022
  Transmission Date: 20050328
  Serious: Yes (Hospitalization)
  Sender: FDA-Public Use
  Company Number: None

PATIENT
  Age: 14 Year
  Sex: Male
  Weight: 61.3 kg

DRUGS (5)
  1. L-ASPARAGINASE [Suspect]
     Indication: NON-HODGKIN'S LYMPHOMA
     Dosage: 10560 UNITS ONCE INTRAMUSCU
     Route: 030
     Dates: start: 20041013, end: 20041013
  2. VINCRISTINE [Suspect]
     Dosage: 2MG ONCE INTRAVENOU
     Route: 042
     Dates: start: 20041011, end: 20041011
  3. SEPTRA [Concomitant]
  4. ONDANSETRON [Concomitant]
  5. DEXAMETHASONE [Concomitant]

REACTIONS (6)
  - ABDOMINAL PAIN UPPER [None]
  - ANGIOPATHY [None]
  - CAECITIS [None]
  - COMPUTERISED TOMOGRAM ABNORMAL [None]
  - GASTROINTESTINAL DISORDER [None]
  - NEUTROPENIC COLITIS [None]
